FAERS Safety Report 5335551-9 (Version None)
Quarter: 2007Q2

REPORT INFORMATION
  Report Type: 
  Country: None (occurrence: None)
  Receive Date: 20070522
  Receipt Date: 20070510
  Transmission Date: 20071010
  Serious: No
  Sender: FDA-Public Use
  Company Number: HECT-10263

PATIENT
  Age: 61 Year
  Sex: Female

DRUGS (3)
  1. HECTOROL [Suspect]
     Indication: HYPERPARATHYROIDISM SECONDARY
     Dosage: 2.5 MCG 3X/W PO
     Route: 048
     Dates: start: 20070101, end: 20070321
  2. HECTOROL [Suspect]
     Indication: HYPERPARATHYROIDISM SECONDARY
     Dosage: 0.5 MCG 4X/W PO
     Route: 048
     Dates: start: 20070101, end: 20070321
  3. HECTOROL [Suspect]
     Indication: HYPERPARATHYROIDISM SECONDARY
     Dosage: 0.5 MCG QD PO
     Route: 047
     Dates: start: 20060101, end: 20070101

REACTIONS (4)
  - ARTERIOVENOUS FISTULA OPERATION [None]
  - HYPERPARATHYROIDISM [None]
  - MUSCULAR WEAKNESS [None]
  - OVERDOSE [None]
